FAERS Safety Report 23354657 (Version 2)
Quarter: 2024Q1

REPORT INFORMATION
  Report Type: Spontaneous
  Country: DE (occurrence: DE)
  Receive Date: 20240101
  Receipt Date: 20240104
  Transmission Date: 20240410
  Serious: Yes (Other)
  Sender: FDA-Public Use
  Company Number: DE-BoehringerIngelheim-2023-BI-280483

PATIENT
  Age: 72 Year
  Sex: Male
  Weight: 115 kg

DRUGS (5)
  1. JARDIANCE [Suspect]
     Active Substance: EMPAGLIFLOZIN
     Indication: Type 2 diabetes mellitus
  2. TAMSULOSIN [Concomitant]
     Active Substance: TAMSULOSIN
     Indication: Product used for unknown indication
  3. OLMESARTAN MEDOXOMIL [Concomitant]
     Active Substance: OLMESARTAN MEDOXOMIL
     Indication: Product used for unknown indication
  4. Natrilix SR 1.5 mg [Concomitant]
     Indication: Product used for unknown indication
  5. Janumet 50mg/1000 mg [Concomitant]
     Indication: Product used for unknown indication

REACTIONS (13)
  - Prostate cancer [Unknown]
  - Dementia [Unknown]
  - Gait inability [Unknown]
  - Muscle atrophy [Unknown]
  - Weight decreased [Unknown]
  - Fatigue [Unknown]
  - Anger [Unknown]
  - Confusional state [Unknown]
  - Thirst [Unknown]
  - Taste disorder [Unknown]
  - Blood test abnormal [Unknown]
  - Dizziness [Unknown]
  - Dysgeusia [Unknown]

NARRATIVE: CASE EVENT DATE: 20230101
